FAERS Safety Report 24992665 (Version 3)
Quarter: 2025Q2

REPORT INFORMATION
  Report Type: Report from Study
  Country: US (occurrence: US)
  Receive Date: 20250221
  Receipt Date: 20250408
  Transmission Date: 20250717
  Serious: No
  Sender: TAKEDA
  Company Number: US-TAKEDA-2025TUS017731

PATIENT
  Sex: Male
  Weight: 77 kg

DRUGS (3)
  1. HUMAN IMMUNOGLOBULIN G [Suspect]
     Active Substance: HUMAN IMMUNOGLOBULIN G
     Indication: Immunodeficiency common variable
     Dosage: 8 GRAM, 1/WEEK
  2. KETOCONAZOLE [Concomitant]
     Active Substance: KETOCONAZOLE
  3. LORATADINE [Concomitant]
     Active Substance: LORATADINE

REACTIONS (3)
  - No adverse event [Unknown]
  - Poor quality product administered [Unknown]
  - Liquid product physical issue [Unknown]
